FAERS Safety Report 11704270 (Version 1)
Quarter: 2015Q4

REPORT INFORMATION
  Report Type: Spontaneous
  Country: US (occurrence: US)
  Receive Date: 20151106
  Receipt Date: 20151106
  Transmission Date: 20160304
  Serious: No
  Sender: FDA-Public Use
  Company Number: US-TEVA-605971USA

PATIENT
  Sex: Female

DRUGS (1)
  1. PROAIR HFA [Suspect]
     Active Substance: ALBUTEROL SULFATE
     Indication: PRODUCT USED FOR UNKNOWN INDICATION
     Route: 055

REACTIONS (3)
  - Lacrimation increased [Not Recovered/Not Resolved]
  - Eyelid disorder [Not Recovered/Not Resolved]
  - Accidental exposure to product [Recovered/Resolved]

NARRATIVE: CASE EVENT DATE: 20151028
